FAERS Safety Report 6925502-5 (Version None)
Quarter: 2010Q3

REPORT INFORMATION
  Report Type: 
  Country: None (occurrence: None)
  Receive Date: 20100813
  Receipt Date: 20100813
  Transmission Date: 20110219
  Serious: Yes (Other)
  Sender: FDA-Public Use
  Company Number: None

PATIENT
  Age: 23 Year
  Sex: Female
  Weight: 79.3795 kg

DRUGS (1)
  1. ZICAM COLD REMEDY NASAL GEL ? ZICAM [Suspect]

REACTIONS (2)
  - ANOSMIA [None]
  - HYPOGEUSIA [None]
